FAERS Safety Report 19837326 (Version 1)
Quarter: 2021Q3

REPORT INFORMATION
  Report Type: Spontaneous
  Country: US (occurrence: US)
  Receive Date: 20210916
  Receipt Date: 20210916
  Transmission Date: 20211014
  Serious: No
  Sender: FDA-Public Use
  Company Number: US-JNJFOC-20210901652

PATIENT

DRUGS (1)
  1. ZYRTEC [Suspect]
     Active Substance: CETIRIZINE HYDROCHLORIDE
     Indication: PRODUCT USED FOR UNKNOWN INDICATION
     Dosage: USED  FOR YEARS
     Route: 065

REACTIONS (3)
  - Nasal congestion [Unknown]
  - Drug ineffective [Unknown]
  - Lacrimation increased [Unknown]

NARRATIVE: CASE EVENT DATE: 2021
